FAERS Safety Report 4984639-0 (Version None)
Quarter: 2006Q2

REPORT INFORMATION
  Report Type: 
  Country: None (occurrence: None)
  Receive Date: 20060427
  Receipt Date: 20050930
  Transmission Date: 20061013
  Serious: Yes (Hospitalization, Disabling)
  Sender: FDA-Public Use
  Company Number: US-MERCK-0510USA01990

PATIENT
  Age: 59 Year
  Sex: Male
  Weight: 85 kg

DRUGS (7)
  1. VIOXX [Suspect]
     Indication: NECK PAIN
     Route: 048
     Dates: start: 20000616, end: 20020401
  2. VIOXX [Suspect]
     Indication: SHOULDER PAIN
     Route: 048
     Dates: start: 20000616, end: 20020401
  3. ASPIRIN [Concomitant]
     Route: 065
  4. ALEVE [Concomitant]
     Route: 065
     Dates: end: 20000601
  5. TYLENOL (CAPLET) [Concomitant]
     Route: 065
  6. STANBACK [Concomitant]
     Route: 065
  7. NEURONTIN [Concomitant]
     Route: 048
     Dates: start: 20000616

REACTIONS (16)
  - CEREBROVASCULAR ACCIDENT [None]
  - CHEST DISCOMFORT [None]
  - CORONARY ARTERY DISEASE [None]
  - DEPRESSION [None]
  - DYSPNOEA [None]
  - FALL [None]
  - HAEMORRHAGE INTRACRANIAL [None]
  - HYPERTENSIVE CARDIOMYOPATHY [None]
  - INSOMNIA [None]
  - JOINT INJURY [None]
  - LIMB INJURY [None]
  - MUSCULOSKELETAL CHEST PAIN [None]
  - MYOCARDIAL ISCHAEMIA [None]
  - ROAD TRAFFIC ACCIDENT [None]
  - SHOULDER PAIN [None]
  - VENTRICULAR DYSFUNCTION [None]
